FAERS Safety Report 10520660 (Version 1)
Quarter: 2014Q4

REPORT INFORMATION
  Report Type: Spontaneous
  Country: IT (occurrence: IT)
  Receive Date: 20141015
  Receipt Date: 20141015
  Transmission Date: 20150528
  Serious: Yes (Death, Other)
  Sender: FDA-Public Use
  Company Number: PHHY2008IT045492

PATIENT
  Age: 45 Year
  Sex: Female

DRUGS (2)
  1. IMATINIB [Suspect]
     Active Substance: IMATINIB
     Indication: MALIGNANT MAST CELL NEOPLASM
     Route: 065
  2. 2-CDA [Suspect]
     Active Substance: CLADRIBINE
     Indication: MALIGNANT MAST CELL NEOPLASM
     Dosage: 0.14 MG/KG, UNK
     Route: 065

REACTIONS (5)
  - No therapeutic response [Unknown]
  - Therapeutic response decreased [Unknown]
  - Malignant neoplasm progression [Unknown]
  - Injury [Fatal]
  - Malignant mast cell neoplasm [Unknown]
